FAERS Safety Report 25995894 (Version 1)
Quarter: 2025Q4

REPORT INFORMATION
  Report Type: Spontaneous
  Country: AU (occurrence: AU)
  Receive Date: 20251104
  Receipt Date: 20251104
  Transmission Date: 20260117
  Serious: Yes (Death, Hospitalization, Other)
  Sender: AMGEN
  Company Number: AU-AMGEN-AUSSP2025215021

PATIENT
  Sex: Female

DRUGS (3)
  1. USTEKINUMAB [Suspect]
     Active Substance: USTEKINUMAB
     Indication: Crohn^s disease
     Dosage: UNK
     Route: 065
     Dates: start: 2020, end: 202312
  2. INFLIXIMAB [Suspect]
     Active Substance: INFLIXIMAB
     Indication: Crohn^s disease
     Dosage: UNK
     Route: 065
     Dates: start: 20240801, end: 20240912
  3. PREDNISOLONE [Concomitant]
     Active Substance: PREDNISOLONE
     Route: 048

REACTIONS (16)
  - Respiratory failure [Fatal]
  - Bronchiectasis [Unknown]
  - Dyspnoea [Unknown]
  - Hypoxia [Unknown]
  - Nausea [Unknown]
  - Interstitial lung disease [Unknown]
  - Pneumocystis jirovecii pneumonia [Unknown]
  - Pneumonia [Unknown]
  - Polyuria [Unknown]
  - Presyncope [Unknown]
  - Tachypnoea [Unknown]
  - Influenza B virus test positive [Unknown]
  - Condition aggravated [Unknown]
  - C-reactive protein increased [Unknown]
  - Herpes simplex [Unknown]
  - White blood cell count increased [Unknown]
